FAERS Safety Report 6828189-5 (Version None)
Quarter: 2010Q3

REPORT INFORMATION
  Report Type: 
  Country: None (occurrence: None)
  Receive Date: 20100709
  Receipt Date: 20100630
  Transmission Date: 20110219
  Serious: Yes (Hospitalization, Other)
  Sender: FDA-Public Use
  Company Number: US-ABBOTT-10P-163-0627248-00

PATIENT
  Sex: Female
  Weight: 65.83 kg

DRUGS (4)
  1. HUMIRA [Suspect]
     Indication: PSORIASIS
     Route: 058
     Dates: start: 20100213
  2. HUMIRA [Suspect]
     Dates: start: 20100501
  3. EXFORGE [Concomitant]
     Indication: HYPERTENSION
     Dosage: 10/320
  4. PROPOXYPHENE-N [Concomitant]
     Indication: PAIN

REACTIONS (7)
  - ARTHRALGIA [None]
  - INCORRECT DOSE ADMINISTERED [None]
  - INCORRECT STORAGE OF DRUG [None]
  - NERVE COMPRESSION [None]
  - NERVE INJURY [None]
  - RASH [None]
  - WRONG TECHNIQUE IN DRUG USAGE PROCESS [None]
